FAERS Safety Report 6139912-X (Version None)
Quarter: 2009Q2

REPORT INFORMATION
  Report Type: 
  Country: None (occurrence: None)
  Receive Date: 20090401
  Receipt Date: 20090325
  Transmission Date: 20091009
  Serious: Yes (Other)
  Sender: FDA-Public Use
  Company Number: US-MERCK-0901USA01572

PATIENT
  Age: 65 Year
  Sex: Female

DRUGS (1)
  1. SINGULAIR [Suspect]
     Indication: NASAL DISORDER
     Route: 048

REACTIONS (2)
  - MENTAL DISORDER [None]
  - SUICIDAL IDEATION [None]
